FAERS Safety Report 9520733 (Version 1)
Quarter: 2013Q1

REPORT INFORMATION
  Report Type: Spontaneous
  Country: US (occurrence: None)
  Receive Date: 20130305
  Receipt Date: 20130305
  Transmission Date: 20140127
  Serious: Yes (Other)
  Sender: FDA-Public Use
  Company Number: 163-21880-12033414

PATIENT
  Age: 63 Year
  Sex: Male

DRUGS (1)
  1. REVLIMID [Suspect]
     Indication: PLASMA CELL MYELOMA
     Dosage: 25 MG,  1 IN 1 D,  PO
     Route: 048
     Dates: start: 201112

REACTIONS (4)
  - Rash erythematous [None]
  - Pain [None]
  - Burning sensation [None]
  - Skin exfoliation [None]
